FAERS Safety Report 5221993-9 (Version None)
Quarter: 2007Q1

REPORT INFORMATION
  Report Type: 
  Country: None (occurrence: None)
  Receive Date: 20070129
  Receipt Date: 20060306
  Transmission Date: 20070707
  Serious: No
  Sender: FDA-Public Use
  Company Number: US016701

PATIENT
  Age: 44 Year
  Sex: Female

DRUGS (3)
  1. WELLBUTRIN [Suspect]
     Indication: FIBROMYALGIA
     Dosage: 200MG PER DAY
     Route: 048
     Dates: start: 20051001
  2. PROVIGIL [Suspect]
     Indication: SLEEP APNOEA SYNDROME
     Route: 048
     Dates: start: 20051231
  3. 5-HYDROXYTRYPTOPHAN [Suspect]
     Indication: SLEEP DISORDER
     Dosage: 50MG PER DAY
     Route: 065
     Dates: start: 20050801

REACTIONS (2)
  - DRUG INTERACTION [None]
  - INSOMNIA [None]
